FAERS Safety Report 9157784 (Version 1)
Quarter: 2013Q1

REPORT INFORMATION
  Report Type: Spontaneous
  Country: DK (occurrence: None)
  Receive Date: 20130213
  Receipt Date: 20130213
  Transmission Date: 20140127
  Serious: Yes (Hospitalization)
  Sender: FDA-Public Use
  Company Number: 2013MA000959

PATIENT
  Age: 74 Year
  Sex: Male

DRUGS (10)
  1. BUTALBITAL, ASPIRIN (ACETYLSALICYLIC ACID) AND CAFFEINE TABLETS USP 50MG/325MG/40MG (AELLC) (BUTALBITAL, ASPIRIN AND CAFFEINE) [Suspect]
     Route: 048
     Dates: end: 20120917
  2. XARELTO [Suspect]
     Route: 048
     Dates: start: 20120913, end: 20120917
  3. ZYLORIC [Concomitant]
  4. SIMVASTATIN [Concomitant]
  5. DELIX [Concomitant]
  6. ISOPTIN [Concomitant]
  7. LASIX [Concomitant]
  8. HYDROCHLOROTHIAZIDE [Concomitant]
  9. DIGIMERCK [Concomitant]
  10. PANTOZOL [Concomitant]

REACTIONS (3)
  - Thrombocytopenia [None]
  - Lower gastrointestinal haemorrhage [None]
  - Drug interaction [None]
